FAERS Safety Report 5495621-1 (Version None)
Quarter: 2007Q4

REPORT INFORMATION
  Report Type: 
  Country: None (occurrence: None)
  Receive Date: 20071018
  Receipt Date: 20070228
  Transmission Date: 20080405
  Serious: Yes (Other)
  Sender: FDA-Public Use
  Company Number: 2006058576

PATIENT
  Age: 33 Year
  Sex: Female

DRUGS (8)
  1. NEURONTIN [Suspect]
     Indication: NEURALGIA
     Dosage: 900 MG (300 MG, 3 IN 1 D)
     Dates: start: 20010205
  2. TRAZODONE HCL [Concomitant]
  3. PAXIL [Concomitant]
  4. TEMAZEPAM [Concomitant]
  5. SONATA [Concomitant]
  6. LORTAB [Concomitant]
  7. DURAGESIC-100 [Concomitant]
  8. OXYCODONE HCL [Concomitant]

REACTIONS (3)
  - DRUG INEFFECTIVE [None]
  - INSOMNIA [None]
  - SUICIDE ATTEMPT [None]
